FAERS Safety Report 6450040-6 (Version None)
Quarter: 2009Q4

REPORT INFORMATION
  Report Type: 
  Country: None (occurrence: None)
  Receive Date: 20091123
  Receipt Date: 20091112
  Transmission Date: 20100525
  Serious: Yes (Other)
  Sender: FDA-Public Use
  Company Number: JP-JNJFOC-20091104198

PATIENT
  Age: 6 Year
  Sex: Female

DRUGS (1)
  1. RISPERDAL [Suspect]
     Indication: ASPERGER'S DISORDER
     Dosage: 1 ML AT BEDTIME, INITIATED 6 MONTHS AGO
     Route: 048

REACTIONS (3)
  - FEMALE SEX HORMONE LEVEL ABNORMAL [None]
  - PRECOCIOUS PUBERTY [None]
  - WEIGHT INCREASED [None]
